FAERS Safety Report 7550881-8 (Version None)
Quarter: 2011Q2

REPORT INFORMATION
  Report Type: 
  Country: None (occurrence: None)
  Receive Date: 20110616
  Receipt Date: 20101223
  Transmission Date: 20111010
  Serious: Yes (Hospitalization)
  Sender: FDA-Public Use
  Company Number: US-BAYER-201035942NA

PATIENT
  Age: 31 Year
  Sex: Female
  Weight: 85.261 kg

DRUGS (14)
  1. YASMIN [Suspect]
     Dosage: 1 DF, QD
     Route: 048
     Dates: start: 20010801, end: 20040601
  2. YAZ [Suspect]
     Indication: CONTRACEPTION
     Dosage: UNK
     Dates: start: 20080401, end: 20090301
  3. UNCODEABLE ^UNKNOWN MANUFACTURER^ [Concomitant]
     Dosage: UNK
     Dates: start: 20080101
  4. MOTRIN [Concomitant]
  5. YAZ [Suspect]
  6. SULFAMETHOXAZOLE [Concomitant]
     Dosage: UNK
     Route: 048
     Dates: start: 20061027
  7. SUDAL [Concomitant]
     Dosage: 60500 UNK, UNK
     Route: 048
     Dates: start: 20011128
  8. HYDROCODONE BITARTRATE AND ACETAMINOPHEN [Concomitant]
     Dosage: 500 MG, UNK
     Route: 048
     Dates: start: 20061021
  9. TOPAMAX [Concomitant]
     Indication: MIGRAINE
     Dosage: UNK
     Dates: start: 20080101, end: 20100101
  10. PAROXETINE HCL [Concomitant]
     Dosage: 10 MG, UNK
     Route: 048
     Dates: start: 20060515
  11. BIAXIN [Concomitant]
     Dosage: 500 MG, UNK
     Route: 048
     Dates: start: 20011128
  12. PAXIL [Concomitant]
     Dosage: UNK
     Dates: start: 20060101
  13. YASMIN [Suspect]
     Dosage: UNK
     Dates: start: 20060301, end: 20070701
  14. YAZ [Suspect]
     Indication: PREMENSTRUAL SYNDROME

REACTIONS (7)
  - EMOTIONAL DISTRESS [None]
  - CHOLELITHIASIS [None]
  - CHOLESTEROSIS [None]
  - PAIN [None]
  - GALLBLADDER DISORDER [None]
  - VOMITING [None]
  - CHOLECYSTITIS CHRONIC [None]
